FAERS Safety Report 4352022-7 (Version None)
Quarter: 2004Q2

REPORT INFORMATION
  Report Type: 
  Country: None (occurrence: None)
  Receive Date: 20040503
  Receipt Date: 20040225
  Transmission Date: 20050107
  Serious: Yes (Hospitalization, Disabling)
  Sender: FDA-Public Use
  Company Number: DE-MERCK-0402DEU00162

PATIENT
  Age: 8 Year
  Sex: Female
  Weight: 26 kg

DRUGS (4)
  1. ALBUTEROL SULFATE [Concomitant]
     Route: 055
  2. AMBROXOL HYDROCHLORIDE AND CLENBUTEROL HYDROCHLORIDE [Concomitant]
     Route: 065
  3. SINGULAIR [Suspect]
     Indication: BRONCHITIS
     Route: 048
     Dates: start: 20031014, end: 20031201
  4. SINGULAIR [Suspect]
     Indication: CONJUNCTIVITIS ALLERGIC
     Route: 048
     Dates: start: 20031014, end: 20031201

REACTIONS (1)
  - DIABETES MELLITUS INSULIN-DEPENDENT [None]
